FAERS Safety Report 10172583 (Version 1)
Quarter: 2014Q2

REPORT INFORMATION
  Report Type: Spontaneous
  Country: US (occurrence: US)
  Receive Date: 20140515
  Receipt Date: 20140515
  Transmission Date: 20141212
  Serious: No
  Sender: FDA-Public Use
  Company Number: US-009507513-1405USA003792

PATIENT
  Age: 30 Year
  Sex: Female

DRUGS (2)
  1. DEXAMETHASONE [Suspect]
     Indication: CENTRAL NERVOUS SYSTEM LYMPHOMA
     Dosage: 2 MG, TID
     Route: 048
     Dates: start: 2008, end: 2008
  2. DEXAMETHASONE [Suspect]
     Dosage: 4 MG, TID
     Route: 048
     Dates: start: 2008, end: 2008

REACTIONS (1)
  - Exposure during pregnancy [Recovered/Resolved]
